FAERS Safety Report 9674926 (Version 1)
Quarter: 2013Q4

REPORT INFORMATION
  Report Type: Spontaneous
  Country: US (occurrence: US)
  Receive Date: 20131107
  Receipt Date: 20131107
  Transmission Date: 20140711
  Serious: Yes (Other)
  Sender: FDA-Public Use
  Company Number: US-BAYER-2013-133858

PATIENT
  Age: 49 Year
  Sex: Female
  Weight: 81.63 kg

DRUGS (3)
  1. RID SHAMPOO [Suspect]
     Indication: UNEVALUABLE EVENT
     Dosage: UNK
     Route: 061
     Dates: start: 201309
  2. RID SHAMPOO [Suspect]
     Indication: UNEVALUABLE EVENT
     Dosage: UNK
     Route: 061
     Dates: start: 20131027, end: 20131028
  3. IVERMECTIN [Concomitant]

REACTIONS (8)
  - Throat tightness [Not Recovered/Not Resolved]
  - Formication [Not Recovered/Not Resolved]
  - Rash macular [Not Recovered/Not Resolved]
  - Bite [Not Recovered/Not Resolved]
  - Lymphadenopathy [Not Recovered/Not Resolved]
  - Alopecia [Not Recovered/Not Resolved]
  - Off label use [None]
  - Inappropriate schedule of drug administration [None]
